FAERS Safety Report 9824121 (Version 2)
Quarter: 2014Q1

REPORT INFORMATION
  Report Type: Spontaneous
  Country: US (occurrence: US)
  Receive Date: 20140116
  Receipt Date: 20140116
  Transmission Date: 20141002
  Serious: No
  Sender: FDA-Public Use
  Company Number: US-GILEAD-2011-0040247

PATIENT
  Age: 71 Year
  Sex: Female

DRUGS (4)
  1. LETAIRIS [Suspect]
     Indication: PULMONARY HYPERTENSION
     Route: 048
     Dates: start: 20110517
  2. LETAIRIS [Suspect]
     Route: 048
     Dates: start: 20110608
  3. RANEXA [Concomitant]
  4. IMDUR [Concomitant]

REACTIONS (4)
  - Feeling abnormal [Unknown]
  - Unevaluable event [Unknown]
  - Hypotension [Not Recovered/Not Resolved]
  - Dizziness [Not Recovered/Not Resolved]
